FAERS Safety Report 9435707 (Version 1)
Quarter: 2013Q3

REPORT INFORMATION
  Report Type: Spontaneous
  Country: BE (occurrence: BE)
  Receive Date: 20130801
  Receipt Date: 20130801
  Transmission Date: 20140515
  Serious: Yes (Other)
  Sender: FDA-Public Use
  Company Number: BE-ABBOTT-13P-013-1125888-00

PATIENT
  Sex: Female

DRUGS (3)
  1. DUODOPA [Suspect]
     Indication: PARKINSON^S DISEASE
     Dosage: AM DOSE: 6ML, CONTINUOUS DOSE: 1.8ML/H, EXTRA DOSE:  3ML
     Route: 050
     Dates: start: 20130603, end: 20130614
  2. DUODOPA [Suspect]
     Dosage: DOSAGES CONTINUOUSLY MONITORED AND ADJUSTED
     Route: 050
     Dates: start: 20130614, end: 20130707
  3. DUODOPA [Suspect]
     Dosage: AM DOSE: 3.5ML, CONTINUOUS DOSE: 1.3ML/H, EXTRA DOSE:  2.5ML
     Route: 050
     Dates: start: 20130707

REACTIONS (1)
  - Inflammation [Unknown]
